FAERS Safety Report 17102493 (Version 2)
Quarter: 2019Q4

REPORT INFORMATION
  Report Type: Spontaneous
  Country: JP (occurrence: JP)
  Receive Date: 20191202
  Receipt Date: 20191205
  Transmission Date: 20200122
  Serious: Yes (Hospitalization, Other)
  Sender: FDA-Public Use
  Company Number: NVSJ2019JP004014

PATIENT
  Age: 59 Year
  Sex: Female
  Weight: 55.5 kg

DRUGS (3)
  1. ANASTROZOLE TABLETS [Suspect]
     Active Substance: ANASTROZOLE
     Indication: BREAST CANCER RECURRENT
     Dosage: 1 MG, QD
     Route: 048
     Dates: start: 20180810, end: 20190110
  2. LETROZOLE. [Suspect]
     Active Substance: LETROZOLE
     Indication: BREAST CANCER RECURRENT
     Dosage: 2.5MG, DAILY
     Route: 048
     Dates: start: 20190208, end: 20191004
  3. ABEMACICLIB [Suspect]
     Active Substance: ABEMACICLIB
     Indication: BREAST CANCER RECURRENT
     Dosage: 75 MG, BID
     Route: 048
     Dates: start: 20180810, end: 20191004

REACTIONS (9)
  - Language disorder [Recovering/Resolving]
  - Arthralgia [Unknown]
  - Metastases to bone [Unknown]
  - Cerebral artery stenosis [Unknown]
  - Hemiparesis [Recovered/Resolved]
  - Cerebral infarction [Recovering/Resolving]
  - Metastases to lung [Unknown]
  - Breast cancer recurrent [Unknown]
  - Malignant neoplasm progression [Unknown]

NARRATIVE: CASE EVENT DATE: 20191004
